FAERS Safety Report 21749905 (Version 1)
Quarter: 2022Q4

REPORT INFORMATION
  Report Type: Spontaneous
  Country: None (occurrence: FR)
  Receive Date: 20221219
  Receipt Date: 20221219
  Transmission Date: 20230113
  Serious: Yes (Other)
  Sender: FDA-Public Use
  Company Number: FR-B.Braun Medical Inc.-2135968

PATIENT
  Age: 25 Year
  Sex: Male

DRUGS (8)
  1. ACETAMINOPHEN [Suspect]
     Active Substance: ACETAMINOPHEN
  2. ALCOHOL [Suspect]
     Active Substance: ALCOHOL
  3. CAFFEINE [Suspect]
     Active Substance: CAFFEINE
  4. CANNABIS SATIVA SUBSP. INDICA TOP [Suspect]
     Active Substance: CANNABIS SATIVA SUBSP. INDICA TOP
  5. 6-ACETYLMORPHINE [Suspect]
     Active Substance: 6-ACETYLMORPHINE
  6. PAPAVERINE HYDROCHLORIDE [Suspect]
     Active Substance: PAPAVERINE HYDROCHLORIDE
  7. HEROIN [Suspect]
     Active Substance: DIAMORPHINE
  8. NOSCAPINE [Suspect]
     Active Substance: NOSCAPINE

REACTIONS (2)
  - Drug abuse [Recovered/Resolved]
  - Palpitations [Recovered/Resolved]
